FAERS Safety Report 5429184-3 (Version None)
Quarter: 2007Q3

REPORT INFORMATION
  Report Type: 
  Country: None (occurrence: None)
  Receive Date: 20070829
  Receipt Date: 20070827
  Transmission Date: 20080115
  Serious: Yes (Life-Threatening)
  Sender: FDA-Public Use
  Company Number: AU-ASTRAZENECA-2007AP05354

PATIENT
  Age: 60 Year
  Sex: Female

DRUGS (9)
  1. ESOMEPRAZOLE MAGNESIUM [Suspect]
     Route: 048
  2. RAMIPRIL [Suspect]
     Route: 048
     Dates: end: 20060328
  3. AVAPRO [Suspect]
     Route: 048
     Dates: end: 20060328
  4. GLICLAZIDE [Suspect]
     Route: 048
     Dates: end: 20060322
  5. ASPIRIN [Suspect]
     Route: 048
  6. GEMFIBROZIL [Suspect]
     Route: 048
     Dates: end: 20060328
  7. METFORMIN HYDROCHLORIDE [Suspect]
     Route: 048
     Dates: end: 20060322
  8. AMLODIPINE [Concomitant]
     Route: 048
  9. CALTRATE [Concomitant]
     Route: 048

REACTIONS (6)
  - ANOREXIA [None]
  - HYPERKALAEMIA [None]
  - MALAISE [None]
  - RENAL FAILURE ACUTE [None]
  - RETCHING [None]
  - VOMITING [None]
